FAERS Safety Report 9878237 (Version 2)
Quarter: 2014Q1

REPORT INFORMATION
  Report Type: Spontaneous
  Country: AU (occurrence: AU)
  Receive Date: 20140206
  Receipt Date: 20140311
  Transmission Date: 20141002
  Serious: Yes (Death)
  Sender: FDA-Public Use
  Company Number: AU-NOVEN-14AU008781

PATIENT
  Age: 68 Year
  Sex: Male

DRUGS (4)
  1. PAROXETINE [Suspect]
     Indication: INTENTIONAL SELF-INJURY
     Dosage: UNK
     Route: 065
  2. ZOLPIDEM [Suspect]
     Indication: INTENTIONAL SELF-INJURY
     Dosage: UNK
     Route: 065
  3. MIRTAZAPINE [Suspect]
     Indication: INTENTIONAL SELF-INJURY
     Dosage: UNK
     Route: 065
  4. DULOXETINE [Suspect]
     Indication: INTENTIONAL SELF-INJURY
     Dosage: UNK
     Route: 065

REACTIONS (3)
  - Drug interaction [Fatal]
  - Death [Fatal]
  - Intentional self-injury [Fatal]
